FAERS Safety Report 8485716-2 (Version None)
Quarter: 2012Q3

REPORT INFORMATION
  Report Type: 
  Country: None (occurrence: None)
  Receive Date: 20120703
  Receipt Date: 20120622
  Transmission Date: 20120928
  Serious: Yes (Other)
  Sender: FDA-Public Use
  Company Number: US-JNJCP-30000114325

PATIENT

DRUGS (1)
  1. NTG ULTRA SHEER SUNBLOCK LOTION SPF100 USA NTUSL1US [Suspect]
     Dosage: AS DIRECTED, HEAVILY AND OFTEN APPLIED
     Route: 061

REACTIONS (1)
  - BURNS THIRD DEGREE [None]
